FAERS Safety Report 6268032-9 (Version None)
Quarter: 2009Q3

REPORT INFORMATION
  Report Type: 
  Country: None (occurrence: None)
  Receive Date: 20090713
  Receipt Date: 20090701
  Transmission Date: 20100115
  Serious: Yes (Other)
  Sender: FDA-Public Use
  Company Number: CIP09001781

PATIENT
  Age: 80 Year
  Sex: Male

DRUGS (2)
  1. ASACOL [Suspect]
     Dosage: ORAL
     Route: 048
     Dates: start: 20090301
  2. SULFASALAZINE [Suspect]
     Dates: end: 20090301

REACTIONS (2)
  - DYSPNOEA [None]
  - PULMONARY FIBROSIS [None]
